FAERS Safety Report 15516436 (Version 1)
Quarter: 2018Q4

REPORT INFORMATION
  Report Type: Spontaneous
  Country: US (occurrence: US)
  Receive Date: 20181017
  Receipt Date: 20181017
  Transmission Date: 20190205
  Serious: Yes (Other)
  Sender: FDA-Public Use
  Company Number: US-MYLANLABS-2018M1075631

PATIENT
  Sex: Female

DRUGS (1)
  1. ERLOTINIB [Suspect]
     Active Substance: ERLOTINIB
     Indication: SMALL CELL LUNG CANCER METASTATIC
     Route: 065

REACTIONS (4)
  - Dermatitis [Unknown]
  - Dermatosis [Unknown]
  - Skin exfoliation [Unknown]
  - Alopecia scarring [Unknown]
